FAERS Safety Report 16304310 (Version 2)
Quarter: 2021Q3

REPORT INFORMATION
  Report Type: Spontaneous
  Country: US (occurrence: US)
  Receive Date: 20190513
  Receipt Date: 20210922
  Transmission Date: 20211014
  Serious: No
  Sender: FDA-Public Use
  Company Number: US-PFIZER INC-2019192851

PATIENT
  Age: 74 Year
  Sex: Male
  Weight: 88 kg

DRUGS (3)
  1. TOVIAZ [Suspect]
     Active Substance: FESOTERODINE FUMARATE
     Indication: HYPERTONIC BLADDER
     Dosage: 8 MG, DAILY(ONCE DAILY AT NIGHT  )
     Route: 048
     Dates: start: 201902
  2. ELIQUIS [Concomitant]
     Active Substance: APIXABAN
     Indication: ATRIAL FIBRILLATION
     Dosage: 1 DF, 2X/DAY(1 TABLET TAKEN BY MOUTH TWICE DAILY: 1 IN THE MORNING AND 1 AT NIGHT )
  3. CARVEDILOL. [Concomitant]
     Active Substance: CARVEDILOL
     Indication: BLOOD PRESSURE ABNORMAL
     Dosage: 1 DF, 2X/DAY(1 TABLET TAKEN BY MOUTH TWICE DAILY: 1 IN THE MORNING AND 1 AT NIGHT)
     Route: 048
     Dates: start: 2015

REACTIONS (3)
  - Hypoacusis [Unknown]
  - Cognitive disorder [Unknown]
  - Dry mouth [Recovering/Resolving]

NARRATIVE: CASE EVENT DATE: 201902
